FAERS Safety Report 6791440-4 (Version None)
Quarter: 2010Q2

REPORT INFORMATION
  Report Type: 
  Country: None (occurrence: None)
  Receive Date: 20100624
  Receipt Date: 20080714
  Transmission Date: 20101027
  Serious: No
  Sender: FDA-Public Use
  Company Number: US-PFIZER INC-2008058020

PATIENT
  Sex: Male
  Weight: 109.09 kg

DRUGS (3)
  1. CADUET [Suspect]
     Indication: HYPERTENSION
     Dates: start: 20080508, end: 20080514
  2. CADUET [Suspect]
     Indication: BLOOD CHOLESTEROL INCREASED
  3. CARDIOVASCULAR SYSTEM DRUGS [Concomitant]
     Indication: BLOOD PRESSURE

REACTIONS (3)
  - OEDEMA PERIPHERAL [None]
  - PAIN IN EXTREMITY [None]
  - RENAL PAIN [None]
